FAERS Safety Report 17558399 (Version 2)
Quarter: 2025Q2

REPORT INFORMATION
  Report Type: Report from Study
  Country: FR (occurrence: FR)
  Receive Date: 20200319
  Receipt Date: 20250621
  Transmission Date: 20250716
  Serious: Yes (Other)
  Sender: AUROBINDO
  Company Number: FR-GILEAD-2020-0453457

PATIENT
  Sex: Male

DRUGS (1)
  1. EMTRICITABINE\TENOFOVIR [Suspect]
     Active Substance: EMTRICITABINE\TENOFOVIR
     Indication: Prophylaxis against HIV infection
     Route: 065
     Dates: start: 201202

REACTIONS (1)
  - Glomerular filtration rate decreased [Unknown]
